FAERS Safety Report 9723585 (Version 1)
Quarter: 2013Q4

REPORT INFORMATION
  Report Type: Spontaneous
  Country: GB (occurrence: GB)
  Receive Date: 20131202
  Receipt Date: 20131202
  Transmission Date: 20140711
  Serious: Yes (Other)
  Sender: FDA-Public Use
  Company Number: GB-PFIZER INC-2013340102

PATIENT
  Age: 42 Year
  Sex: Female
  Weight: 56 kg

DRUGS (3)
  1. TRANEXAMIC ACID [Suspect]
     Dosage: UNK
     Route: 048
     Dates: start: 20130726, end: 20130823
  2. CO-CODAMOL [Concomitant]
     Dosage: UNK
     Dates: start: 20130726, end: 20130823
  3. RAMIPRIL [Concomitant]
     Dosage: UNK
     Dates: start: 20130726, end: 20130823

REACTIONS (2)
  - Vomiting [Recovered/Resolved]
  - Tremor [Recovered/Resolved]
